FAERS Safety Report 25250500 (Version 1)
Quarter: 2025Q2

REPORT INFORMATION
  Report Type: Spontaneous
  Country: RU (occurrence: RU)
  Receive Date: 20250429
  Receipt Date: 20250429
  Transmission Date: 20250716
  Serious: Yes (Hospitalization, Other)
  Sender: CSL BEHRING
  Company Number: RU-BEH-2025202756

PATIENT
  Age: 13 Year
  Sex: Male
  Weight: 36 kg

DRUGS (1)
  1. PRIVIGEN [Suspect]
     Active Substance: HUMAN IMMUNOGLOBULIN G
     Indication: Acute leukaemia
     Route: 042
     Dates: start: 20250410, end: 20250410

REACTIONS (5)
  - Anaphylactic shock [Recovered/Resolved]
  - Cyanosis [Recovered/Resolved]
  - Blood pressure decreased [Recovered/Resolved]
  - Tremor [Recovered/Resolved]
  - Off label use [Unknown]

NARRATIVE: CASE EVENT DATE: 20250410
